FAERS Safety Report 19030761 (Version 1)
Quarter: 2021Q1

REPORT INFORMATION
  Report Type: Spontaneous
  Country: FR (occurrence: FR)
  Receive Date: 20210319
  Receipt Date: 20210319
  Transmission Date: 20210420
  Serious: Yes (Death)
  Sender: FDA-Public Use
  Company Number: FR-ACCORD-219892

PATIENT
  Age: 59 Year
  Sex: Male
  Weight: 83 kg

DRUGS (5)
  1. RAMIPRIL. [Suspect]
     Active Substance: RAMIPRIL
     Indication: HYPERTENSION
     Route: 048
  2. AMIODARONE [Suspect]
     Active Substance: AMIODARONE
     Indication: ATRIAL FIBRILLATION
     Route: 048
  3. FLUDARA [Suspect]
     Active Substance: FLUDARABINE PHOSPHATE
     Indication: CHEMOTHERAPY
     Route: 041
     Dates: start: 20201110, end: 20201124
  4. CILASTATIN/CILASTATIN SODIUM [Suspect]
     Active Substance: CILASTATIN
     Indication: INFECTION
     Route: 041
     Dates: start: 20201205, end: 20201210
  5. IMIPENEM [Suspect]
     Active Substance: IMIPENEM
     Indication: INFECTION
     Route: 041
     Dates: start: 20201125, end: 20201201

REACTIONS (1)
  - Eosinophilic pneumonia [Fatal]

NARRATIVE: CASE EVENT DATE: 202011
